FAERS Safety Report 5145573-9 (Version None)
Quarter: 2006Q4

REPORT INFORMATION
  Report Type: 
  Country: None (occurrence: None)
  Receive Date: 20061102
  Receipt Date: 20061025
  Transmission Date: 20070319
  Serious: Yes (Disabling)
  Sender: FDA-Public Use
  Company Number: 230601

PATIENT
  Age: 57 Year
  Sex: Female

DRUGS (2)
  1. MABTHERA(RITUXIMAB) CONC FOR SOLUTION FOR INFUSION [Suspect]
     Indication: DRUG USE FOR UNKNOWN INDICATION
     Dosage: 700 MG, INTRAVENOUS
     Route: 042
     Dates: start: 20060719, end: 20060809
  2. IMMUNE GLOBULIN INTRAVENOUS (HUMAN) [Suspect]
     Indication: DRUG USE FOR UNKNOWN INDICATION
     Dosage: 60 G, QD, INTRAVENOUS
     Route: 042
     Dates: start: 20060816, end: 20060817

REACTIONS (2)
  - RETINAL TEAR [None]
  - VITREOUS DETACHMENT [None]
